FAERS Safety Report 20886136 (Version 1)
Quarter: 2022Q2

REPORT INFORMATION
  Report Type: Report from Study
  Country: IN (occurrence: IN)
  Receive Date: 20220527
  Receipt Date: 20220527
  Transmission Date: 20220721
  Serious: Yes (Hospitalization)
  Sender: FDA-Public Use
  Company Number: IN-BRISTOL-MYERS SQUIBB COMPANY-2022-044045

PATIENT
  Age: 30 Year
  Sex: Female
  Weight: 91 kg

DRUGS (1)
  1. NIVOLUMAB [Suspect]
     Active Substance: NIVOLUMAB
     Indication: Hodgkin^s disease
     Dosage: 2 WEEKLY
     Route: 042
     Dates: start: 20220211

REACTIONS (1)
  - Bone marrow disorder [Unknown]
